FAERS Safety Report 24118599 (Version 4)
Quarter: 2025Q1

REPORT INFORMATION
  Report Type: Spontaneous
  Country: US (occurrence: US)
  Receive Date: 20240722
  Receipt Date: 20250206
  Transmission Date: 20250408
  Serious: Yes (Other)
  Sender: PFIZER
  Company Number: US-PFIZER INC-202200236894

PATIENT
  Age: 67 Year
  Sex: Female
  Weight: 78.458 kg

DRUGS (2)
  1. IBRANCE [Suspect]
     Active Substance: PALBOCICLIB
     Indication: Breast cancer female
     Route: 048
  2. LETROZOLE [Concomitant]
     Active Substance: LETROZOLE
     Dosage: 2.5 MG, 1X/DAY (OD)
     Route: 048
     Dates: end: 202412

REACTIONS (4)
  - Anxiety [Unknown]
  - Depression [Unknown]
  - Peripheral vascular disorder [Unknown]
  - Hyperlipidaemia [Unknown]
